FAERS Safety Report 8175783-8 (Version None)
Quarter: 2012Q1

REPORT INFORMATION
  Report Type: 
  Country: None (occurrence: None)
  Receive Date: 20120228
  Receipt Date: 20120214
  Transmission Date: 20120608
  Serious: Yes (Disabling, Other)
  Sender: FDA-Public Use
  Company Number: 2010MA004928

PATIENT
  Sex: Female

DRUGS (31)
  1. HYDROCODONE BITARTRATE AND ACETAMINOPHEN [Concomitant]
  2. PREVACID [Concomitant]
  3. GABAPENTIN [Concomitant]
  4. TRAZODONE HCL [Concomitant]
  5. FERROUS SULFATE TAB [Concomitant]
  6. ASPIRIN [Concomitant]
  7. PHENAZOPYRIDINE HCL TAB [Concomitant]
  8. FUROSEMIDE [Concomitant]
  9. LESCOL [Concomitant]
  10. MAGNESIUM [Concomitant]
  11. PAROXETINE [Concomitant]
  12. AMOXICILLIN [Concomitant]
  13. CLARITHROMYCIN [Concomitant]
  14. CEPHALEXIN [Concomitant]
  15. ZYRTEC [Concomitant]
  16. AFLURIA [Concomitant]
  17. LEVOTHYROXINE SODIUM [Suspect]
  18. ENALAPRIL MALEATE [Concomitant]
  19. METOCLOPRAMIDE HYDROCHLORIDE [Suspect]
     Indication: GASTROOESOPHAGEAL REFLUX DISEASE
     Dosage: 10 MG; PO;
     Route: 048
     Dates: start: 20060126, end: 20091101
  20. METFORMIN HCL [Concomitant]
  21. PREMARIN [Concomitant]
  22. NIASPAN [Concomitant]
  23. NAPROXEN [Concomitant]
  24. MORPHINE [Concomitant]
  25. OXYCODONE HCL [Concomitant]
  26. LORAZEPAM [Concomitant]
  27. LYRICA [Concomitant]
  28. VITAMIN D [Concomitant]
  29. LUNESTA [Concomitant]
  30. CAPTOPRIL [Concomitant]
  31. NEXIUM [Concomitant]

REACTIONS (25)
  - GASTROOESOPHAGEAL REFLUX DISEASE [None]
  - TREMOR [None]
  - ANXIETY [None]
  - TARDIVE DYSKINESIA [None]
  - EMOTIONAL DISORDER [None]
  - HYPERTENSION [None]
  - VIITH NERVE PARALYSIS [None]
  - DIABETIC GASTROPARESIS [None]
  - BRONCHIOLITIS [None]
  - MOVEMENT DISORDER [None]
  - PAIN [None]
  - DYSKINESIA [None]
  - TRANSIENT ISCHAEMIC ATTACK [None]
  - BRONCHIAL HYPERREACTIVITY [None]
  - ECONOMIC PROBLEM [None]
  - HEADACHE [None]
  - DIABETES MELLITUS [None]
  - BLINDNESS [None]
  - OSTEOARTHRITIS [None]
  - ALTERED STATE OF CONSCIOUSNESS [None]
  - MUSCLE TWITCHING [None]
  - EXTRAPYRAMIDAL DISORDER [None]
  - DYSTONIA [None]
  - HYPERLIPIDAEMIA [None]
  - GAIT DISTURBANCE [None]
